FAERS Safety Report 16301210 (Version 7)
Quarter: 2025Q3

REPORT INFORMATION
  Report Type: Spontaneous
  Country: EU (occurrence: EU)
  Receive Date: 20190510
  Receipt Date: 20250807
  Transmission Date: 20251020
  Serious: Yes (Hospitalization, Other)
  Sender: AUROBINDO
  Company Number: None

PATIENT
  Age: 60 Year
  Sex: Male

DRUGS (37)
  1. HYDROXYZINE [Suspect]
     Active Substance: HYDROXYZINE HYDROCHLORIDE
     Indication: Binge eating
     Route: 065
  2. HYDROXYZINE [Suspect]
     Active Substance: HYDROXYZINE HYDROCHLORIDE
     Route: 065
  3. MIANSERIN [Suspect]
     Active Substance: MIANSERIN
     Indication: Binge eating
     Route: 065
  4. BACLOFEN [Suspect]
     Active Substance: BACLOFEN
     Indication: Binge eating
     Route: 065
     Dates: start: 2016
  5. BACLOFEN [Suspect]
     Active Substance: BACLOFEN
     Indication: Eating disorder
     Route: 065
  6. BACLOFEN [Suspect]
     Active Substance: BACLOFEN
     Dosage: UNK UNK, ONCE A DAY, 180 TO 200 MG/D
     Route: 065
  7. BACLOFEN [Suspect]
     Active Substance: BACLOFEN
     Dosage: 150 MILLIGRAM, ONCE A DAY, DOSAGE OF 150 MG/D AFTER MEDICAL EVALUATION
     Route: 065
  8. BACLOFEN [Suspect]
     Active Substance: BACLOFEN
     Dosage: 70 MILLIGRAM, ONCE A DAY
     Route: 065
  9. BACLOFEN [Suspect]
     Active Substance: BACLOFEN
     Dosage: 300 MILLIGRAM, ONCE A DAY, REGIMEN UP TO 300 MG/D
     Route: 065
  10. BACLOFEN [Suspect]
     Active Substance: BACLOFEN
     Dosage: 80 MILLIGRAM, ONCE A DAY, DOSES TO 80 MG/D
     Route: 065
  11. BACLOFEN [Suspect]
     Active Substance: BACLOFEN
     Route: 065
  12. BACLOFEN [Suspect]
     Active Substance: BACLOFEN
     Indication: Binge eating
     Dosage: 60 MILLIGRAM, 5 TIMES A DAY
     Route: 048
  13. BACLOFEN [Suspect]
     Active Substance: BACLOFEN
     Route: 048
  14. BACLOFEN [Suspect]
     Active Substance: BACLOFEN
     Dosage: 150 MILLIGRAM, ONCE A DAY
     Route: 048
  15. BACLOFEN [Suspect]
     Active Substance: BACLOFEN
     Route: 048
  16. BACLOFEN [Suspect]
     Active Substance: BACLOFEN
     Dosage: 1 DOSAGE FORM, ONCE A DAY  (120 TO 140MG, 1X/DAY )
     Route: 048
  17. BACLOFEN [Suspect]
     Active Substance: BACLOFEN
     Dosage: 60 MILLIGRAM, ONCE A DAY
     Route: 048
  18. BACLOFEN [Suspect]
     Active Substance: BACLOFEN
     Dosage: 1 DOSAGE FORM, ONCE A DAY
     Route: 048
  19. BACLOFEN [Suspect]
     Active Substance: BACLOFEN
     Dosage: 70 MILLIGRAM, ONCE A DAY
     Route: 048
     Dates: start: 2016
  20. BACLOFEN [Suspect]
     Active Substance: BACLOFEN
     Dosage: 150 MILLIGRAM, ONCE A DAY
     Route: 048
  21. TELMISARTAN [Concomitant]
     Active Substance: TELMISARTAN
     Indication: Binge eating
     Route: 065
  22. TELMISARTAN [Concomitant]
     Active Substance: TELMISARTAN
     Indication: Hypertension
  23. RILMENIDINE [Concomitant]
     Active Substance: RILMENIDINE
     Indication: Binge eating
     Route: 065
  24. RILMENIDINE [Concomitant]
     Active Substance: RILMENIDINE
     Indication: Hypertension
  25. SPIRONOLACTONE [Concomitant]
     Active Substance: SPIRONOLACTONE
     Indication: Binge eating
     Route: 065
  26. SPIRONOLACTONE [Concomitant]
     Active Substance: SPIRONOLACTONE
     Indication: Hypertension
  27. ABACAVIR\LAMIVUDINE [Concomitant]
     Active Substance: ABACAVIR\LAMIVUDINE
     Indication: Binge eating
     Route: 065
  28. ABACAVIR\LAMIVUDINE [Concomitant]
     Active Substance: ABACAVIR\LAMIVUDINE
     Indication: HIV infection
  29. LERCANIDIPINE [Concomitant]
     Active Substance: LERCANIDIPINE
     Indication: Atrial fibrillation
     Route: 065
  30. LERCANIDIPINE [Concomitant]
     Active Substance: LERCANIDIPINE
     Indication: Hypertension
  31. NEVIRAPINE [Concomitant]
     Active Substance: NEVIRAPINE
     Indication: Binge eating
     Route: 065
  32. NEVIRAPINE [Concomitant]
     Active Substance: NEVIRAPINE
     Indication: HIV infection
  33. BISOPROLOL [Concomitant]
     Active Substance: BISOPROLOL
     Indication: Binge eating
     Route: 065
     Dates: start: 2016
  34. BISOPROLOL [Concomitant]
     Active Substance: BISOPROLOL
     Indication: Atrial fibrillation
  35. ASPIRIN [Concomitant]
     Active Substance: ASPIRIN
     Indication: Osteoarthritis
     Route: 065
  36. FLECAINIDE [Concomitant]
     Active Substance: FLECAINIDE
     Indication: Atrial fibrillation
     Route: 065
  37. CANNABIS SATIVA SUBSP. INDICA TOP [Concomitant]
     Active Substance: CANNABIS SATIVA SUBSP. INDICA TOP
     Indication: Product used for unknown indication
     Route: 065

REACTIONS (19)
  - Off label use [Unknown]
  - Overdose [Unknown]
  - Psychotic disorder [Unknown]
  - Hallucination, visual [Recovered/Resolved]
  - Confusional state [Recovered/Resolved]
  - Psychomotor hyperactivity [Recovered/Resolved]
  - Somnolence [Recovered/Resolved]
  - Aggression [Recovered/Resolved]
  - Delusional perception [Recovered/Resolved]
  - Time perception altered [Recovered/Resolved]
  - Tachyphrenia [Recovered/Resolved]
  - Cognitive disorder [Recovered/Resolved]
  - Irritability [Recovered/Resolved]
  - Dizziness [Recovered/Resolved]
  - Nausea [Recovered/Resolved]
  - Amnesia [Recovered/Resolved]
  - Delusion [Unknown]
  - Drug level increased [Recovered/Resolved]
  - Drug withdrawal syndrome [Recovered/Resolved]
